FAERS Safety Report 7584671-7 (Version None)
Quarter: 2011Q2

REPORT INFORMATION
  Report Type: 
  Country: None (occurrence: None)
  Receive Date: 20110630
  Receipt Date: 20110620
  Transmission Date: 20111010
  Serious: Yes (Hospitalization, Other)
  Sender: FDA-Public Use
  Company Number: US-ELI_LILLY_AND_COMPANY-US201103006520

PATIENT
  Sex: Female

DRUGS (3)
  1. FORTEO [Suspect]
     Dosage: 20 UG, QD
     Route: 058
  2. FORTEO [Suspect]
     Indication: OSTEOPOROSIS
     Dosage: 20 UG, QD
     Route: 058
     Dates: start: 20110204
  3. FORTEO [Suspect]
     Dosage: 20 UG, QD
     Route: 058

REACTIONS (5)
  - INJECTION SITE PAIN [None]
  - HIP FRACTURE [None]
  - GAIT DISTURBANCE [None]
  - FALL [None]
  - INJECTION SITE MASS [None]
